FAERS Safety Report 7968372-9 (Version None)
Quarter: 2011Q4

REPORT INFORMATION
  Report Type: 
  Country: None (occurrence: None)
  Receive Date: 20111207
  Receipt Date: 20111125
  Transmission Date: 20120403
  Serious: Yes (Death)
  Sender: FDA-Public Use
  Company Number: 2011MA017105

PATIENT
  Sex: Female

DRUGS (1)
  1. FEVERALL [Suspect]
     Dosage: IV
     Route: 042

REACTIONS (2)
  - ACCIDENTAL OVERDOSE [None]
  - ACCIDENTAL DEATH [None]
